FAERS Safety Report 6911984-1 (Version None)
Quarter: 2010Q3

REPORT INFORMATION
  Report Type: 
  Country: None (occurrence: None)
  Receive Date: 20100806
  Receipt Date: 20071231
  Transmission Date: 20110219
  Serious: No
  Sender: FDA-Public Use
  Company Number: US-PFIZER INC-2006133407

PATIENT
  Sex: Female
  Weight: 61.23 kg

DRUGS (11)
  1. DETROL LA [Suspect]
     Indication: INCONTINENCE
     Dates: start: 20061001, end: 20061001
  2. INDOCIN - SLOW RELEASE [Concomitant]
     Indication: LIMB OPERATION
     Dates: start: 19790101
  3. CIMETIDINE [Concomitant]
  4. SYNTHROID [Concomitant]
  5. HYDROCHLOROTHIAZIDE [Concomitant]
     Indication: BLOOD PRESSURE
  6. NEURONTIN [Concomitant]
     Indication: KNEE OPERATION
  7. ASPIRINE [Concomitant]
     Indication: CARDIAC DISORDER
     Dates: start: 20060401
  8. IRON [Concomitant]
     Indication: ANAEMIA
  9. FIBRE, DIETARY [Concomitant]
  10. OXYCODONE [Concomitant]
  11. MULTI-VITAMINS [Concomitant]
     Indication: ANAEMIA

REACTIONS (4)
  - ABDOMINAL PAIN UPPER [None]
  - DECREASED APPETITE [None]
  - MALAISE [None]
  - VOMITING [None]
